FAERS Safety Report 7892933-9 (Version None)
Quarter: 2011Q4

REPORT INFORMATION
  Report Type: 
  Country: None (occurrence: None)
  Receive Date: 20111104
  Receipt Date: 20111028
  Transmission Date: 20120403
  Serious: Yes (Other)
  Sender: FDA-Public Use
  Company Number: US-UCBSA-033949

PATIENT
  Sex: Female
  Weight: 3.2 kg

DRUGS (11)
  1. FOLIC ACID [Concomitant]
     Indication: PREGNANCY
     Route: 064
     Dates: start: 20100801, end: 20110310
  2. MULTI-VITAMINS [Concomitant]
     Indication: VITAMIN SUPPLEMENTATION
     Dosage: 6 PILLS ONCE A DAY
     Route: 064
     Dates: end: 20110310
  3. KEPPRA XR [Suspect]
     Route: 064
     Dates: start: 20100819, end: 20101022
  4. MULTI-VITAMINS [Concomitant]
     Indication: PREGNANCY
     Dosage: 6 PILLS ONCE A DAY
     Route: 064
     Dates: end: 20110310
  5. KEPPRA XR [Suspect]
     Dosage: 3500 -4000 MG/DAY
     Route: 064
     Dates: start: 20101130, end: 20100101
  6. KEPPRA XR [Suspect]
     Route: 064
     Dates: start: 20101207, end: 20100101
  7. KEPPRA XR [Suspect]
     Route: 064
     Dates: start: 20101023, end: 20100101
  8. KEPPRA XR [Suspect]
     Route: 064
     Dates: start: 20101216, end: 20110310
  9. KEPPRA XR [Suspect]
     Indication: EPILEPSY
     Route: 064
     Dates: start: 20100818, end: 20100818
  10. KEPPRA [Suspect]
     Indication: EPILEPSY
     Route: 064
     Dates: start: 20100101, end: 20110310
  11. MULTI-VITAMINS [Concomitant]
     Route: 064
     Dates: end: 20110310

REACTIONS (2)
  - PREMATURE BABY [None]
  - FOETAL EXPOSURE DURING PREGNANCY [None]
